FAERS Safety Report 5191684-1 (Version None)
Quarter: 2006Q4

REPORT INFORMATION
  Report Type: 
  Country: None (occurrence: None)
  Receive Date: 20061219
  Receipt Date: 20061206
  Transmission Date: 20070319
  Serious: Yes (Other)
  Sender: FDA-Public Use
  Company Number: 2006150107

PATIENT
  Sex: Male
  Weight: 19.1 kg

DRUGS (6)
  1. ZYRTEC [Suspect]
     Indication: ANAPHYLACTIC REACTION
     Dosage: ORAL
     Route: 048
     Dates: end: 20061201
  2. ZYRTEC [Suspect]
     Indication: URTICARIA
     Dosage: ORAL
     Route: 048
     Dates: end: 20061201
  3. KEPPRA [Suspect]
     Indication: FLUSHING
     Dates: start: 20060101
  4. KEPPRA [Suspect]
     Indication: HYPERSENSITIVITY
     Dates: start: 20060101
  5. RANITIDINE [Concomitant]
  6. PREDNISONE TAB [Concomitant]

REACTIONS (4)
  - FLUSHING [None]
  - GRAND MAL CONVULSION [None]
  - PETIT MAL EPILEPSY [None]
  - RASH [None]
